FAERS Safety Report 23783508 (Version 1)
Quarter: 2024Q2

REPORT INFORMATION
  Report Type: Spontaneous
  Country: US (occurrence: None)
  Receive Date: 20240424
  Receipt Date: 20240424
  Transmission Date: 20240716
  Serious: Yes (Hospitalization)
  Sender: FDA-Public Use
  Company Number: None

PATIENT
  Age: 62 Year
  Sex: Male
  Weight: 93.8 kg

DRUGS (1)
  1. PENICILLIN [Suspect]
     Active Substance: PENICILLIN
     Indication: Drug-induced liver injury
     Dosage: 1 TAB PO
     Route: 048
     Dates: start: 20230301, end: 20230430

REACTIONS (2)
  - Hepatocellular injury [None]
  - Drug-induced liver injury [None]

NARRATIVE: CASE EVENT DATE: 20230501
